FAERS Safety Report 6145402-0 (Version None)
Quarter: 2009Q2

REPORT INFORMATION
  Report Type: 
  Country: None (occurrence: None)
  Receive Date: 20090402
  Receipt Date: 20090318
  Transmission Date: 20091009
  Serious: Yes (Death)
  Sender: FDA-Public Use
  Company Number: 2009S1004727

PATIENT
  Age: 25 Year
  Sex: Female

DRUGS (10)
  1. ZYPREXA [Suspect]
  2. TEMAZEPAM [Suspect]
  3. DEXTROMETHORPHAN HYDROBROMIDE [Suspect]
  4. ESCITALPRAM OXALATE CAPSULES [Suspect]
  5. AMBIEN [Suspect]
  6. LITHIUM CARBONATE [Concomitant]
  7. RISPERDAL [Concomitant]
  8. LEXAPRO [Concomitant]
  9. NAPROXEN [Concomitant]
  10. METHOCARBAMOL [Concomitant]

REACTIONS (4)
  - ALCOHOL POISONING [None]
  - BRONCHOPNEUMONIA [None]
  - DRUG TOXICITY [None]
  - PULMONARY CONGESTION [None]
